FAERS Safety Report 18702867 (Version 1)
Quarter: 2021Q1

REPORT INFORMATION
  Report Type: Not Available
  Country: None (occurrence: None)
  Receive Date: 20210105
  Receipt Date: 20210105
  Transmission Date: 20210419
  Serious: Yes (Other)
  Sender: FDA-Public Use
  Company Number: US-AKORN-158638

PATIENT
  Age: 17 Year
  Sex: Female

DRUGS (1)
  1. MYORISAN [Suspect]
     Active Substance: ISOTRETINOIN

REACTIONS (7)
  - Fear of disease [Recovered/Resolved]
  - Hypoaesthesia [Recovered/Resolved]
  - Panic attack [Recovered/Resolved]
  - Off label use [Recovered/Resolved]
  - Anxiety [Recovered/Resolved]
  - Fear [Recovered/Resolved]
  - Weight decreased [Recovered/Resolved]
